FAERS Safety Report 20900282 (Version 4)
Quarter: 2022Q2

REPORT INFORMATION
  Report Type: Report from Study
  Country: KR (occurrence: KR)
  Receive Date: 20220601
  Receipt Date: 20220617
  Transmission Date: 20220721
  Serious: Yes (Hospitalization)
  Sender: FDA-Public Use
  Company Number: KR-JNJFOC-20220547644

PATIENT
  Sex: Female

DRUGS (1)
  1. SPRAVATO [Suspect]
     Active Substance: ESKETAMINE
     Indication: Depression
     Dates: start: 20220516, end: 20220520

REACTIONS (8)
  - Suicide attempt [Recovering/Resolving]
  - Hypotension [Unknown]
  - Dizziness [Unknown]
  - Therapeutic response decreased [Unknown]
  - Middle insomnia [Unknown]
  - Nightmare [Unknown]
  - Stress [Unknown]
  - Depression [Not Recovered/Not Resolved]

NARRATIVE: CASE EVENT DATE: 20220501
